FAERS Safety Report 7506434-0 (Version None)
Quarter: 2011Q2

REPORT INFORMATION
  Report Type: 
  Country: None (occurrence: None)
  Receive Date: 20110526
  Receipt Date: 20110513
  Transmission Date: 20111010
  Serious: Yes (Other)
  Sender: FDA-Public Use
  Company Number: US-BAYER-201037789NA

PATIENT
  Age: 23 Year
  Sex: Female
  Weight: 73 kg

DRUGS (6)
  1. YAZ [Suspect]
     Indication: MENSTRUATION IRREGULAR
  2. YAZ [Suspect]
     Indication: CONTRACEPTION
     Dosage: UNK
     Route: 048
     Dates: start: 20070801, end: 20071001
  3. YAZ [Suspect]
     Indication: PREMENSTRUAL SYNDROME
  4. PHENERGAN HCL [Concomitant]
     Dosage: 25 MG, UNK
     Route: 030
     Dates: start: 20070917
  5. LEXAPRO [Concomitant]
     Dosage: 10 MG, QD
     Route: 048
  6. TYLENOL W/ CODEINE NO. 3 [Concomitant]
     Indication: PAIN
     Dosage: 1-2 EVERY 4 HOURS AS NEEDED
     Route: 048
     Dates: start: 20070901

REACTIONS (5)
  - GALLBLADDER INJURY [None]
  - CHOLECYSTITIS CHRONIC [None]
  - CONSTIPATION [None]
  - CHOLELITHIASIS [None]
  - ABDOMINAL PAIN UPPER [None]
